FAERS Safety Report 23546570 (Version 2)
Quarter: 2024Q1

REPORT INFORMATION
  Report Type: Spontaneous
  Country: GB (occurrence: GB)
  Receive Date: 20240221
  Receipt Date: 20240222
  Transmission Date: 20240410
  Serious: Yes (Death, Hospitalization, Other)
  Sender: FDA-Public Use
  Company Number: GB-ABBVIE-5647405

PATIENT
  Age: 80 Year
  Sex: Female

DRUGS (2)
  1. VENETOCLAX [Suspect]
     Active Substance: VENETOCLAX
     Indication: Acute myeloid leukaemia
     Route: 048
  2. AZACITIDINE [Suspect]
     Active Substance: AZACITIDINE
     Indication: Acute myeloid leukaemia
     Route: 065

REACTIONS (5)
  - Red blood cell transfusion [Unknown]
  - Platelet transfusion [Unknown]
  - Acute myeloid leukaemia [Fatal]
  - COVID-19 pneumonia [Unknown]
  - Febrile neutropenia [Unknown]
